FAERS Safety Report 10534973 (Version 1)
Quarter: 2014Q4

REPORT INFORMATION
  Report Type: Spontaneous
  Country: US (occurrence: US)
  Receive Date: 20141022
  Receipt Date: 20141022
  Transmission Date: 20150529
  Serious: No
  Sender: FDA-Public Use
  Company Number: US-ASTRAZENECA-2013SE91258

PATIENT
  Age: 70 Year
  Sex: Female

DRUGS (7)
  1. CRESTOR [Suspect]
     Active Substance: ROSUVASTATIN CALCIUM
     Route: 048
  2. OSPHENA [Suspect]
     Active Substance: OSPEMIFENE
     Indication: VULVOVAGINAL DRYNESS
     Route: 065
     Dates: start: 201310, end: 20131113
  3. ZETIA [Concomitant]
     Active Substance: EZETIMIBE
  4. VITAMIN B COMPLEX [Concomitant]
     Active Substance: CYANOCOBALAMIN\DEXPANTHENOL\NIACINAMIDE\PYRIDOXINE HYDROCHLORIDE\RIBOFLAVIN 5^-PHOSPHATE SODIUM\THIAMINE HYDROCHLORIDE\VITAMIN B COMPLEX
  5. LEVOXYL [Concomitant]
     Active Substance: LEVOTHYROXINE SODIUM
  6. AMLODIPINE [Concomitant]
     Active Substance: AMLODIPINE BESYLATE
  7. ESTRACE [Concomitant]
     Active Substance: ESTRADIOL

REACTIONS (14)
  - Nervousness [Unknown]
  - Body temperature increased [Unknown]
  - Palpitations [Recovered/Resolved]
  - Hyperhidrosis [Recovered/Resolved]
  - Blood potassium decreased [Unknown]
  - Vulvovaginal dryness [Unknown]
  - Vomiting [Recovered/Resolved]
  - Gait disturbance [Recovering/Resolving]
  - Nausea [Recovered/Resolved]
  - Weight decreased [Unknown]
  - Dyspnoea [Recovered/Resolved]
  - Asthenia [Recovering/Resolving]
  - Muscle spasms [Recovered/Resolved]
  - Off label use [Unknown]

NARRATIVE: CASE EVENT DATE: 201310
